FAERS Safety Report 7463744-3 (Version None)
Quarter: 2011Q1

REPORT INFORMATION
  Report Type: 
  Country: None (occurrence: None)
  Receive Date: 20110302
  Receipt Date: 20100709
  Transmission Date: 20110831
  Serious: Yes (Death, Other)
  Sender: FDA-Public Use
  Company Number: 163-21880-10041091

PATIENT
  Age: 70 Year
  Sex: Female
  Weight: 58.0604 kg

DRUGS (9)
  1. ASPIRIN [Concomitant]
  2. DEXAMETHASONE [Concomitant]
  3. MOM (MAGNESIUM HYDROXIDE) [Concomitant]
  4. DOXIL [Concomitant]
  5. ZOMETA [Concomitant]
  6. REVLIMID [Suspect]
  7. ACYCLOVIR [Concomitant]
  8. REVLIMID [Suspect]
     Indication: MULTIPLE MYELOMA
     Dosage: 10 MG, DAILY X 21 DAYS/OFF 7 DAYS, PO
     Route: 048
     Dates: start: 20100102, end: 20100526
  9. OTC SUPPLEMENTS (MULTIVITAMIN AND MINERAL SUPPLEMENT) [Concomitant]

REACTIONS (10)
  - NAUSEA [None]
  - DEATH [None]
  - VOMITING [None]
  - THROMBOCYTOPENIA [None]
  - ARTHRALGIA [None]
  - PANCYTOPENIA [None]
  - NEUTROPENIA [None]
  - DISEASE PROGRESSION [None]
  - ANAEMIA [None]
  - BACK PAIN [None]
